FAERS Safety Report 5071250-9 (Version None)
Quarter: 2006Q3

REPORT INFORMATION
  Report Type: 
  Country: None (occurrence: None)
  Receive Date: 20060804
  Receipt Date: 20060729
  Transmission Date: 20061208
  Serious: Yes (Hospitalization)
  Sender: FDA-Public Use
  Company Number: 2006UW15292

PATIENT
  Age: 55 Year
  Sex: Female

DRUGS (9)
  1. SEROQUEL [Suspect]
     Indication: PSYCHOTIC DISORDER
     Route: 048
  2. SEROQUEL [Suspect]
     Indication: HALLUCINATION
     Route: 048
  3. PULMICORT [Concomitant]
  4. SINGULAIR [Concomitant]
  5. ALBUTEROL SPIROS [Concomitant]
  6. PROTONIX [Concomitant]
  7. ACIPHEX [Concomitant]
  8. NEURONTIN [Concomitant]
  9. MACRODANTIN [Concomitant]

REACTIONS (4)
  - ABDOMINAL DISTENSION [None]
  - NEUROGENIC BLADDER [None]
  - PERISTALSIS VISIBLE [None]
  - VOLVULUS [None]
